FAERS Safety Report 25590639 (Version 1)
Quarter: 2025Q3

REPORT INFORMATION
  Report Type: Spontaneous
  Country: US (occurrence: None)
  Receive Date: 20250721
  Receipt Date: 20250721
  Transmission Date: 20251020
  Serious: No
  Sender: FDA-CTU
  Company Number: None

PATIENT
  Age: 81 Year
  Sex: Female
  Weight: 83.25 kg

DRUGS (25)
  1. MOUNJARO [Suspect]
     Active Substance: TIRZEPATIDE
     Indication: Weight control
     Route: 058
     Dates: end: 20250629
  2. AMLODIPINE BESYLATE [Concomitant]
     Active Substance: AMLODIPINE BESYLATE
  3. Atorvastatin/Lipitor [Concomitant]
  4. HIZENTRA [Concomitant]
     Active Substance: HUMAN IMMUNOGLOBULIN G
  5. Hydroxyurea/Hydrea [Concomitant]
  6. Levothyroxine/ Synthroid [Concomitant]
  7. LOSARTAN [Concomitant]
     Active Substance: LOSARTAN
  8. METFORMIN HYDROCHLORIDE [Concomitant]
     Active Substance: METFORMIN HYDROCHLORIDE
  9. ASPIRIN [Concomitant]
     Active Substance: ASPIRIN
  10. COENZYME Q10 [Concomitant]
     Active Substance: DIETARY SUPPLEMENT\UBIDECARENONE
  11. FIBER THERAPY (CALCIUM POLYCARBOPHIL) [Concomitant]
     Active Substance: CALCIUM POLYCARBOPHIL
  12. MAGNESIUM OXIDE [Concomitant]
     Active Substance: MAGNESIUM OXIDE
  13. MINERALS\VITAMINS [Concomitant]
     Active Substance: MINERALS\VITAMINS
  14. PROBIOTICS NOS [Concomitant]
     Active Substance: PROBIOTICS NOS
  15. Andrographis [Concomitant]
  16. Diaplex [Concomitant]
  17. Gymnema [Concomitant]
  18. Immuplex [Concomitant]
  19. jade windscreen [Concomitant]
  20. Lily Preserve metal complex [Concomitant]
  21. MYRRH [Concomitant]
     Active Substance: MYRRH
  22. Pinellia Dispersing Formula [Concomitant]
  23. Qing Qi [Concomitant]
  24. Rehmannia Six Formula [Concomitant]
  25. Silken Tresses / glorious sea [Concomitant]

REACTIONS (2)
  - Urticaria [None]
  - Rash erythematous [None]

NARRATIVE: CASE EVENT DATE: 20250629
